FAERS Safety Report 20957479 (Version 1)
Quarter: 2022Q2

REPORT INFORMATION
  Report Type: Spontaneous
  Country: CA (occurrence: CA)
  Receive Date: 20220614
  Receipt Date: 20220614
  Transmission Date: 20220720
  Serious: Yes (Other)
  Sender: FDA-Public Use
  Company Number: CA-TEVA-2022-CA-2045731

PATIENT
  Age: 89 Year
  Sex: Male
  Weight: 71 kg

DRUGS (2)
  1. TAMSULOSIN [Interacting]
     Active Substance: TAMSULOSIN
     Indication: Benign prostatic hyperplasia
     Dosage: .4 MILLIGRAM DAILY;
     Route: 048
  2. DILTIAZEM [Concomitant]
     Active Substance: DILTIAZEM

REACTIONS (2)
  - Drug interaction [Recovered/Resolved]
  - Nocturia [Recovered/Resolved]
